FAERS Safety Report 24614194 (Version 1)
Quarter: 2024Q4

REPORT INFORMATION
  Report Type: Spontaneous
  Country: US (occurrence: US)
  Receive Date: 20241113
  Receipt Date: 20241113
  Transmission Date: 20250114
  Serious: No
  Sender: Haleon PLC
  Company Number: US-002147023-NVSC2024US100673

PATIENT
  Sex: Female

DRUGS (8)
  1. TERBINAFINE [Suspect]
     Active Substance: TERBINAFINE\TERBINAFINE HYDROCHLORIDE
     Indication: Trichophytosis
  2. MOMETASONE [Suspect]
     Active Substance: MOMETASONE
     Indication: Dermatitis contact
     Route: 061
  3. PREDNISONE [Suspect]
     Active Substance: PREDNISONE
     Indication: Dermatitis contact
     Dosage: TAPER PACK
  4. KETOCONAZOLE [Suspect]
     Active Substance: KETOCONAZOLE
     Indication: Trichophytosis
     Route: 061
  5. DIPHENHYDRAMINE [Suspect]
     Active Substance: DIPHENHYDRAMINE
     Indication: Trichophytosis
  6. FLUCONAZOLE [Suspect]
     Active Substance: FLUCONAZOLE
     Indication: Product used for unknown indication
  7. FLUCONAZOLE [Suspect]
     Active Substance: FLUCONAZOLE
  8. ECONAZOLE [Suspect]
     Active Substance: ECONAZOLE
     Indication: Trichophytosis
     Route: 061

REACTIONS (2)
  - Condition aggravated [Recovered/Resolved]
  - Drug ineffective [Unknown]
